FAERS Safety Report 17469564 (Version 2)
Quarter: 2020Q1

REPORT INFORMATION
  Report Type: Report from Study
  Country: IL (occurrence: IL)
  Receive Date: 20200227
  Receipt Date: 20200227
  Transmission Date: 20200409
  Serious: Yes (Other)
  Sender: FDA-Public Use
  Company Number: IL-JNJFOC-20190500386

PATIENT
  Age: 46 Year
  Sex: Female

DRUGS (2)
  1. SIMPONI [Suspect]
     Active Substance: GOLIMUMAB
     Route: 058
     Dates: start: 201907, end: 20200126
  2. SIMPONI [Suspect]
     Active Substance: GOLIMUMAB
     Indication: RHEUMATOID ARTHRITIS
     Route: 058
     Dates: start: 20190326

REACTIONS (5)
  - Helicobacter infection [Recovered/Resolved]
  - Therapeutic product effect decreased [Recovering/Resolving]
  - Drug hypersensitivity [Not Recovered/Not Resolved]
  - Pelvic pain [Recovering/Resolving]
  - Tongue fungal infection [Recovered/Resolved]

NARRATIVE: CASE EVENT DATE: 2019
